FAERS Safety Report 9011671 (Version 5)
Quarter: 2013Q3

REPORT INFORMATION
  Report Type: Spontaneous
  Country: US (occurrence: US)
  Receive Date: 20130108
  Receipt Date: 20130828
  Transmission Date: 20140515
  Serious: Yes (Other)
  Sender: FDA-Public Use
  Company Number: US-PFIZER INC-2013004116

PATIENT
  Age: 60 Year
  Sex: Female
  Weight: 118 kg

DRUGS (6)
  1. PROTONIX [Suspect]
     Indication: GASTROOESOPHAGEAL REFLUX DISEASE
     Dosage: 40 MG, 1X/DAY
     Route: 048
  2. NEURONTIN [Suspect]
     Indication: ANALGESIC THERAPY
     Dosage: 300 MG, 2X/DAY
     Route: 048
     Dates: start: 201201
  3. NEURONTIN [Suspect]
     Indication: FATIGUE
  4. CELEBREX [Suspect]
     Indication: OSTEOARTHRITIS
     Dosage: 200 MG, 1X/DAY
     Route: 048
     Dates: start: 2011
  5. HYDROCHLOROTHIAZIDE/TRIAMTERENE [Concomitant]
     Indication: HYPERTENSION
     Dosage: 25/37.5 MG, AS NEEDED
  6. POTASSIUM CHLORIDE [Concomitant]
     Dosage: 10 MEQ, DAILY

REACTIONS (3)
  - Road traffic accident [Unknown]
  - Rotator cuff syndrome [Unknown]
  - Malaise [Unknown]
